FAERS Safety Report 15042880 (Version 1)
Quarter: 2018Q2

REPORT INFORMATION
  Report Type: Spontaneous
  Country: US (occurrence: US)
  Receive Date: 20180621
  Receipt Date: 20180621
  Transmission Date: 20180711
  Serious: No
  Sender: FDA-Public Use
  Company Number: US-UNITED THERAPEUTICS-UNT-2018-008889

PATIENT
  Sex: Female
  Weight: 56.69 kg

DRUGS (1)
  1. TYVASO [Suspect]
     Active Substance: TREPROSTINIL
     Indication: PULMONARY HYPERTENSION
     Dosage: 60-120 MICROGRAMS, UNK
     Dates: start: 20170831

REACTIONS (5)
  - Condition aggravated [Unknown]
  - Palpitations [Unknown]
  - Dizziness exertional [Unknown]
  - Fatigue [Unknown]
  - Off label use [None]
